FAERS Safety Report 4490760-6 (Version None)
Quarter: 2004Q4

REPORT INFORMATION
  Report Type: 
  Country: None (occurrence: None)
  Receive Date: 20041027
  Receipt Date: 20041015
  Transmission Date: 20050328
  Serious: Yes (Other)
  Sender: FDA-Public Use
  Company Number: CIP04001882

PATIENT
  Age: 26 Year
  Sex: Female

DRUGS (11)
  1. ACTONEL [Suspect]
     Dosage: 35 MG ONCE WEEKLY, ORAL
     Route: 048
     Dates: start: 20040201, end: 20040201
  2. MYSOLINE [Concomitant]
  3. KLONOPIN [Concomitant]
  4. LAMICTAL [Concomitant]
  5. PHENOBARBITAL TAB [Concomitant]
  6. BENADRYL [Concomitant]
  7. IRON VITAMINS NOS (IRON VITAMINS NOS) [Concomitant]
  8. COLACE (DOCUSATE SODIUM) [Concomitant]
  9. CALCIUM WITH VITAMIN D (CALCIUM PHOSPHATE, CALCIUM SODIUM LACTATE) [Concomitant]
  10. NEXIUM [Concomitant]
  11. ANTIBIOTICS [Concomitant]

REACTIONS (2)
  - CONDITION AGGRAVATED [None]
  - CONVULSION [None]
